FAERS Safety Report 10096989 (Version 3)
Quarter: 2015Q3

REPORT INFORMATION
  Report Type: Spontaneous
  Country: US (occurrence: US)
  Receive Date: 20140422
  Receipt Date: 20150812
  Transmission Date: 20151125
  Serious: No
  Sender: FDA-Public Use
  Company Number: US-GILEAD-2012-0061063

PATIENT
  Age: 49 Year
  Sex: Female

DRUGS (4)
  1. LETAIRIS [Suspect]
     Active Substance: AMBRISENTAN
     Indication: DRUG ABUSE
  2. TYVASO [Suspect]
     Active Substance: TREPROSTINIL
  3. ZYRTEC [Concomitant]
     Active Substance: CETIRIZINE HYDROCHLORIDE
  4. LETAIRIS [Suspect]
     Active Substance: AMBRISENTAN
     Indication: PULMONARY HYPERTENSION
     Dosage: 10 MG, UNK
     Route: 048
     Dates: start: 20120417

REACTIONS (11)
  - Road traffic accident [Unknown]
  - Headache [Unknown]
  - Haematoma [Unknown]
  - Asthenia [Unknown]
  - Dyspnoea [Unknown]
  - Nasal congestion [Unknown]
  - Arthralgia [Unknown]
  - Oxygen consumption increased [Unknown]
  - Oedema [Unknown]
  - Epistaxis [Unknown]
  - Cough [Unknown]

NARRATIVE: CASE EVENT DATE: 20120910
